FAERS Safety Report 8716690 (Version 2)
Quarter: 2012Q4

REPORT INFORMATION
  Report Type: Spontaneous
  Country: US (occurrence: None)
  Receive Date: 20120726
  Receipt Date: 20120817
  Transmission Date: 20130627
  Serious: Yes (Hospitalization)
  Sender: FDA-Public Use
  Company Number: CIO12012038

PATIENT
  Age: 74 Year
  Sex: Male

DRUGS (2)
  1. METAMUCIL [Suspect]
     Dosage: UNK DOSE, BEDTIME, ORAL
     Route: 048
     Dates: start: 2010
  2. ALL OTHER THERAPEUTIC PRODUCTS [Concomitant]

REACTIONS (3)
  - Gastroenteritis Escherichia coli [None]
  - Pyrexia [None]
  - Product contamination physical [None]
